FAERS Safety Report 7913140-7 (Version None)
Quarter: 2011Q4

REPORT INFORMATION
  Report Type: 
  Country: None (occurrence: None)
  Receive Date: 20111114
  Receipt Date: 20111031
  Transmission Date: 20120403
  Serious: Yes (Hospitalization)
  Sender: FDA-Public Use
  Company Number: US-ELI_LILLY_AND_COMPANY-US201007002954

PATIENT
  Sex: Female

DRUGS (9)
  1. COUMADIN [Concomitant]
     Dosage: 2.5 MG, UNK
  2. PROPRANOLOL [Concomitant]
     Dosage: 40 MG, UNK
  3. FORTEO [Suspect]
     Dosage: UNK, UNKNOWN
     Route: 065
  4. LIPITOR [Concomitant]
     Dosage: 80 MG, UNK
  5. VITAMIN D [Concomitant]
  6. NORCO [Concomitant]
     Dosage: 10-325 MG
  7. DIGOXIN [Concomitant]
     Dosage: 0.125 MG, UNK
  8. MULTI-VITAMIN [Concomitant]
  9. GLUCOTROL [Concomitant]
     Dosage: 5 MG, UNK

REACTIONS (5)
  - COAGULOPATHY [None]
  - HAEMOGLOBIN DECREASED [None]
  - URINARY TRACT INFECTION [None]
  - HAEMATURIA [None]
  - COGNITIVE DISORDER [None]
